FAERS Safety Report 6795697-5 (Version None)
Quarter: 2010Q2

REPORT INFORMATION
  Report Type: 
  Country: None (occurrence: None)
  Receive Date: 20100625
  Receipt Date: 20100617
  Transmission Date: 20101027
  Serious: Yes (Hospitalization, Other)
  Sender: FDA-Public Use
  Company Number: BE-ABBOTT-10P-013-0643884-01

PATIENT
  Sex: Female
  Weight: 88 kg

DRUGS (7)
  1. HUMIRA [Suspect]
     Indication: CROHN'S DISEASE
     Dosage: INDUCTION REGIMEN, BASELINE
     Route: 058
     Dates: start: 20080415
  2. HUMIRA [Suspect]
     Dosage: INDUCTION REGIMEN
     Route: 058
  3. HUMIRA [Suspect]
     Dosage: MAINTENANCE
     Route: 058
  4. ENTOCORT EC [Concomitant]
     Indication: CROHN'S DISEASE
     Dates: end: 20081201
  5. IMURAN [Concomitant]
     Indication: CROHN'S DISEASE
     Dates: start: 20040302
  6. PERFUSALGAN [Concomitant]
     Indication: PAIN
     Dates: start: 20100317, end: 20100317
  7. BUDESONIDE [Concomitant]
     Indication: CROHN'S DISEASE

REACTIONS (1)
  - SMALL INTESTINAL OBSTRUCTION [None]
